FAERS Safety Report 24343548 (Version 1)
Quarter: 2024Q3

REPORT INFORMATION
  Report Type: Spontaneous
  Country: US (occurrence: None)
  Receive Date: 20240920
  Receipt Date: 20240920
  Transmission Date: 20241016
  Serious: Yes (Disabling, Other)
  Sender: Public
  Company Number: None

PATIENT
  Age: 39 Year
  Sex: Female

DRUGS (1)
  1. OXYCODONE [Suspect]
     Active Substance: OXYCODONE
     Indication: Pain
     Dates: start: 20160816, end: 20240810

REACTIONS (3)
  - Pain [None]
  - Product label issue [None]
  - Disease recurrence [None]

NARRATIVE: CASE EVENT DATE: 20240901
